FAERS Safety Report 24792532 (Version 1)
Quarter: 2024Q4

REPORT INFORMATION
  Report Type: Spontaneous
  Country: PT (occurrence: PT)
  Receive Date: 20241231
  Receipt Date: 20241231
  Transmission Date: 20250114
  Serious: Yes (Death, Hospitalization)
  Sender: STRIDES
  Company Number: PT-STRIDES ARCOLAB LIMITED-2024SP017162

PATIENT
  Age: 40 Year
  Sex: Male

DRUGS (1)
  1. OSELTAMIVIR [Suspect]
     Active Substance: OSELTAMIVIR
     Indication: Influenza
     Dosage: UNK
     Route: 065

REACTIONS (4)
  - Multiple organ dysfunction syndrome [Fatal]
  - Acute respiratory distress syndrome [Fatal]
  - Condition aggravated [Fatal]
  - Drug ineffective [Fatal]
